FAERS Safety Report 24284061 (Version 1)
Quarter: 2024Q3

REPORT INFORMATION
  Report Type: Spontaneous
  Country: US (occurrence: US)
  Receive Date: 20240905
  Receipt Date: 20240905
  Transmission Date: 20241017
  Serious: Yes (Hospitalization, Other)
  Sender: NOVO NORDISK
  Company Number: US-NOVOPROD-1276697

PATIENT
  Age: 46 Year
  Sex: Female

DRUGS (1)
  1. WEGOVY [Suspect]
     Active Substance: SEMAGLUTIDE
     Indication: Weight control
     Dosage: UNK
     Route: 058
     Dates: start: 202403, end: 20240730

REACTIONS (3)
  - Appendicitis perforated [Recovering/Resolving]
  - Pelvic abscess [Recovering/Resolving]
  - Gastrointestinal fistula [Recovering/Resolving]

NARRATIVE: CASE EVENT DATE: 20240731
